FAERS Safety Report 5209287-9 (Version None)
Quarter: 2007Q1

REPORT INFORMATION
  Report Type: 
  Country: None (occurrence: None)
  Receive Date: 20070116
  Receipt Date: 20070108
  Transmission Date: 20070707
  Serious: Yes (Death)
  Sender: FDA-Public Use
  Company Number: NL-SANOFI-SYNTHELABO-A01200700196

PATIENT
  Age: 54 Year
  Sex: Male

DRUGS (3)
  1. LEUCOVORIN CALCIUM [Concomitant]
     Indication: COLON CANCER METASTATIC
     Dosage: CUMMULATIVE DOSE 2200 MG/M2
     Route: 041
  2. FLUOROURACIL [Concomitant]
     Indication: COLON CANCER METASTATIC
     Dosage: CUMMULATIVE DOSE 28,600 MG/M2
     Route: 042
  3. OXALIPLATIN [Suspect]
     Indication: COLON CANCER METASTATIC
     Dosage: CUMMULATIVE DOSE 935 MG/M2
     Route: 041

REACTIONS (1)
  - VENOOCCLUSIVE LIVER DISEASE [None]
